FAERS Safety Report 8562078 (Version 2)
Quarter: 2012Q4

REPORT INFORMATION
  Report Type: 
  Country: FR (occurrence: FR)
  Receive Date: 20120515
  Receipt Date: 20120924
  Transmission Date: 20130627
  Serious: Yes (Life-Threatening, Hospitalization)
  Sender: FDA-Public Use
  Company Number: FR-PFIZER INC-2012115036

PATIENT
  Age: 56 Year
  Sex: Male

DRUGS (2)
  1. SUTENT [Suspect]
     Indication: RENAL CANCER METASTATIC
     Dosage: 37.5 mg, 1x/day
     Route: 048
     Dates: start: 20110826, end: 20120313
  2. EUCREAS [Concomitant]
     Dosage: UNK
     Route: 048
     Dates: start: 2009

REACTIONS (2)
  - Cerebral haemorrhage [Recovered/Resolved]
  - Meningorrhagia [Recovered/Resolved]
